FAERS Safety Report 18565012 (Version 1)
Quarter: 2020Q4

REPORT INFORMATION
  Report Type: Spontaneous
  Country: US (occurrence: US)
  Receive Date: 20201201
  Receipt Date: 20201201
  Transmission Date: 20210114
  Serious: Yes (Hospitalization, Other)
  Sender: FDA-Public Use
  Company Number: NVSC2020US318404

PATIENT
  Age: 62 Year
  Sex: Male

DRUGS (3)
  1. METOPROLOL TARTRATE. [Suspect]
     Active Substance: METOPROLOL TARTRATE
     Indication: PRODUCT USED FOR UNKNOWN INDICATION
     Dosage: UNK
     Route: 065
     Dates: end: 202010
  2. SIGNIFOR [Suspect]
     Active Substance: PASIREOTIDE DIASPARTATE
     Indication: CUSHING^S SYNDROME
     Dosage: 0.6 MG, QD (0.3 MILLIGRAM, BID)
     Route: 065
     Dates: start: 20200911
  3. SIGNIFOR [Suspect]
     Active Substance: PASIREOTIDE DIASPARTATE
     Dosage: 1.2 MG, QD (0.6 MILLIGRAM, BID)
     Route: 065
     Dates: start: 2020

REACTIONS (12)
  - Gastric ulcer [Unknown]
  - Fall [Unknown]
  - Diplopia [Unknown]
  - Orthostatic hypotension [Not Recovered/Not Resolved]
  - Gastric ulcer haemorrhage [Recovered/Resolved]
  - Vomiting [Unknown]
  - Facial bones fracture [Unknown]
  - Fall [Unknown]
  - Product dose omission issue [Unknown]
  - Hypotension [Recovered/Resolved]
  - Nausea [Unknown]
  - Abscess limb [Unknown]

NARRATIVE: CASE EVENT DATE: 2020
